FAERS Safety Report 12395418 (Version 1)
Quarter: 2016Q2

REPORT INFORMATION
  Report Type: Spontaneous
  Country: GB (occurrence: GB)
  Receive Date: 20160523
  Receipt Date: 20160523
  Transmission Date: 20160815
  Serious: Yes (Other)
  Sender: FDA-Public Use
  Company Number: GB-TEVA-660195ACC

PATIENT
  Age: 53 Year
  Sex: Male
  Weight: 88 kg

DRUGS (4)
  1. DIHYDROCODEINE [Concomitant]
     Active Substance: DIHYDROCODEINE
  2. GABAPENTIN. [Suspect]
     Active Substance: GABAPENTIN
     Indication: SHOULDER ARTHROPLASTY
     Route: 048
     Dates: start: 20160427
  3. ACTAVIS UK NAPROXEN [Concomitant]
  4. TRAMADOL HYDROCHLORIDE. [Concomitant]
     Active Substance: TRAMADOL HYDROCHLORIDE

REACTIONS (4)
  - Insomnia [Not Recovered/Not Resolved]
  - Diarrhoea [Not Recovered/Not Resolved]
  - Disorientation [Not Recovered/Not Resolved]
  - Influenza like illness [Not Recovered/Not Resolved]

NARRATIVE: CASE EVENT DATE: 20160427
